FAERS Safety Report 4459547-4 (Version None)
Quarter: 2004Q3

REPORT INFORMATION
  Report Type: 
  Country: None (occurrence: None)
  Receive Date: 20040910
  Receipt Date: 20040519
  Transmission Date: 20050211
  Serious: No
  Sender: FDA-Public Use
  Company Number: 2004214361US

PATIENT
  Sex: Female

DRUGS (1)
  1. BEXTRA [Suspect]
     Dosage: 10 MG, QD,
     Dates: start: 20040517

REACTIONS (2)
  - DIZZINESS [None]
  - ILL-DEFINED DISORDER [None]
